FAERS Safety Report 8327436-0 (Version None)
Quarter: 2012Q2

REPORT INFORMATION
  Report Type: 
  Country: None (occurrence: None)
  Receive Date: 20120419
  Receipt Date: 20120410
  Transmission Date: 20120825
  Serious: Yes (Other)
  Sender: FDA-Public Use
  Company Number: 2012031124

PATIENT
  Age: 15 Year
  Sex: Female
  Weight: 52.1637 kg

DRUGS (13)
  1. PROMETHAZINE [Concomitant]
  2. HIZENTRA [Suspect]
     Indication: HYPOGAMMAGLOBULINAEMIA
     Dosage: (3 G 1X/WEEK, 1 GM (5ML) SUBCUTANEOUS), (2 GM (10 ML) SUBCUTANEOUS), ()
     Route: 058
     Dates: start: 20100920
  3. HIZENTRA [Suspect]
     Indication: HYPOGAMMAGLOBULINAEMIA
     Dosage: (3 G 1X/WEEK, 1 GM (5ML) SUBCUTANEOUS), (2 GM (10 ML) SUBCUTANEOUS), ()
     Route: 058
     Dates: start: 20120101, end: 20120101
  4. DDAVP [Concomitant]
  5. AUGMENTIN '125' [Concomitant]
  6. TYLENOL W/CODEINE #3 (PANADEINE CO) [Concomitant]
  7. CEFPODOXIME PROXETIL [Concomitant]
  8. RITALIN [Concomitant]
  9. HYDROCODONE BITARTRATE + ACETAMINOPHEN [Concomitant]
  10. ACETAMINOPHEN [Concomitant]
  11. ERGOTAMINE-CAFFEINE (MIGRA DIOXADOL) [Concomitant]
  12. HIZENTRA [Suspect]
  13. AMICAR [Concomitant]

REACTIONS (4)
  - ABDOMINAL TENDERNESS [None]
  - PAIN IN EXTREMITY [None]
  - NERVE COMPRESSION [None]
  - PROCEDURAL PAIN [None]
